FAERS Safety Report 16428806 (Version 3)
Quarter: 2019Q3

REPORT INFORMATION
  Report Type: Spontaneous
  Country: US (occurrence: US)
  Receive Date: 20190613
  Receipt Date: 20190716
  Transmission Date: 20191004
  Serious: Yes (Hospitalization)
  Sender: FDA-Public Use
  Company Number: US-STASON PHARMACEUTICALS, INC.-2068216

PATIENT
  Age: 8 Year
  Sex: Male
  Weight: 57 kg

DRUGS (1)
  1. MERCAPTOPURINE. [Suspect]
     Active Substance: MERCAPTOPURINE

REACTIONS (4)
  - Neutropenia [None]
  - Platelet count decreased [None]
  - Rectal haemorrhage [None]
  - Febrile neutropenia [None]
